FAERS Safety Report 5141324-2 (Version None)
Quarter: 2006Q4

REPORT INFORMATION
  Report Type: 
  Country: None (occurrence: None)
  Receive Date: 20061101
  Receipt Date: 20061016
  Transmission Date: 20070319
  Serious: Yes (Death, Other)
  Sender: FDA-Public Use
  Company Number: FR-BRISTOL-MYERS SQUIBB COMPANY-13547575

PATIENT
  Age: 73 Year
  Sex: Male

DRUGS (4)
  1. CAPTEA TABS [Suspect]
     Route: 048
     Dates: end: 20060829
  2. GLUCOPHAGE [Suspect]
     Dosage: THERAPY DURATION: 1 MONTH, 1 WEEK AND 4 DAYS.
     Route: 048
     Dates: start: 20060730, end: 20060819
  3. GLUCOPHAGE [Suspect]
     Route: 048
     Dates: start: 20060823, end: 20060829
  4. NEXEN [Suspect]
     Dates: start: 20060630, end: 20060829

REACTIONS (3)
  - HEPATITIS [None]
  - JAUNDICE [None]
  - RENAL FAILURE ACUTE [None]
